FAERS Safety Report 20435939 (Version 1)
Quarter: 2022Q1

REPORT INFORMATION
  Report Type: Spontaneous
  Country: NL (occurrence: NL)
  Receive Date: 20220207
  Receipt Date: 20220207
  Transmission Date: 20220424
  Serious: Yes (Hospitalization)
  Sender: FDA-Public Use
  Company Number: NL-LRB-00779029

PATIENT
  Age: 61 Year
  Sex: Male
  Weight: 106 kg

DRUGS (8)
  1. ESOMEPRAZOLE [Interacting]
     Active Substance: ESOMEPRAZOLE
     Indication: Prophylaxis
     Dosage: 40 MILLIGRAM, TWO TIMES A DAY (2X A DAY 1 PIECE)
     Route: 065
     Dates: start: 20201124
  2. CLOPIDOGREL [Interacting]
     Active Substance: CLOPIDOGREL BISULFATE
     Indication: Product used for unknown indication
     Dosage: 75 MILLIGRAM (TABLET, 75 MG (MILLIGRAM))
     Route: 065
  3. BISOPROLOL;PERINDOPRIL ARGININE [Concomitant]
     Indication: Product used for unknown indication
     Dosage: UNK (2.5 MG)
     Route: 065
  4. BISOPROLOL [Concomitant]
     Active Substance: BISOPROLOL
     Indication: Product used for unknown indication
     Dosage: UNK (2.5 MG)
     Route: 065
  5. PANTOPRAZOLE SODIUM [Concomitant]
     Active Substance: PANTOPRAZOLE SODIUM
     Indication: Product used for unknown indication
     Dosage: UNK (40MG. THIS WAS GIVEN ON JANUARY 18, 2021 AS A TAR REPLACEMENT FOR ESOMEPRASOL.)
     Route: 065
  6. ROPINIROLE [Concomitant]
     Active Substance: ROPINIROLE
     Indication: Product used for unknown indication
     Dosage: UNK (COATED TABLET, 0.25 MG (MILLIGRAMS))
     Route: 065
  7. SIMVASTATIN [Concomitant]
     Active Substance: SIMVASTATIN
     Indication: Product used for unknown indication
     Dosage: UNK (40 MG)
     Route: 065
  8. VALPROIC ACID [Concomitant]
     Active Substance: VALPROIC ACID
     Indication: Product used for unknown indication
     Dosage: UNK (GASTRO-RESISTANT TABLET, 500 MG (MILLIGRAMS)
     Route: 065

REACTIONS (7)
  - Extrasystoles [Recovered/Resolved]
  - Head discomfort [Recovered/Resolved]
  - Heart rate irregular [Recovered/Resolved]
  - Drug interaction [Unknown]
  - Headache [Recovered/Resolved]
  - Gynaecomastia [Not Recovered/Not Resolved]
  - Peripheral coldness [Recovering/Resolving]

NARRATIVE: CASE EVENT DATE: 20201208
